FAERS Safety Report 10316422 (Version 2)
Quarter: 2015Q1

REPORT INFORMATION
  Report Type: Other
  Country: US (occurrence: US)
  Receive Date: 20140719
  Receipt Date: 20150320
  Transmission Date: 20150720
  Serious: Yes (Hospitalization, Other)
  Sender: FDA-Public Use
  Company Number: US-GSKPPD-2014GSK018250

PATIENT
  Age: 59 Year
  Sex: Male
  Weight: 112.59 kg

DRUGS (8)
  1. VERAPAMIL SA [Concomitant]
     Route: 048
  2. ATENOLOL. [Concomitant]
     Active Substance: ATENOLOL
     Route: 048
  3. ASPIRIN. [Concomitant]
     Active Substance: ASPIRIN
     Route: 048
  4. ISOSORBIDE MONONITRATE SA [Concomitant]
     Route: 048
  5. AVANDIA [Suspect]
     Active Substance: ROSIGLITAZONE MALEATE
     Indication: DIABETES MELLITUS
     Dosage: DATES OF AVANDIA USE COULD NOT BE CONFIRMED IN RECORDS REVIEWED.
     Route: 048
  6. LASIX [Concomitant]
     Active Substance: FUROSEMIDE
     Route: 048
  7. MINOXIDIL. [Concomitant]
     Active Substance: MINOXIDIL
     Route: 048
  8. VALSARTAN. [Concomitant]
     Active Substance: VALSARTAN
     Route: 048

REACTIONS (1)
  - Cardiac failure congestive [Recovered/Resolved]

NARRATIVE: CASE EVENT DATE: 20070131
